FAERS Safety Report 14016892 (Version 1)
Quarter: 2017Q3

REPORT INFORMATION
  Report Type: Report from Study
  Country: US (occurrence: US)
  Receive Date: 20170927
  Receipt Date: 20170927
  Transmission Date: 20171128
  Serious: Yes (Other)
  Sender: FDA-Public Use
  Company Number: US-ARIAD-2017US008806

PATIENT
  Age: 29 Year
  Sex: Female

DRUGS (2)
  1. ICLUSIG [Suspect]
     Active Substance: PONATINIB
     Dosage: 15 MG, QOD
     Route: 048
  2. ICLUSIG [Suspect]
     Active Substance: PONATINIB
     Indication: CHRONIC MYELOID LEUKAEMIA
     Dosage: 45 MG, QD
     Route: 048
     Dates: start: 20170807, end: 20170823

REACTIONS (10)
  - Pyrexia [Recovered/Resolved]
  - Pain in extremity [Unknown]
  - Toxicity to various agents [Unknown]
  - Blood lactate dehydrogenase abnormal [Unknown]
  - Muscle spasms [Unknown]
  - White blood cell count abnormal [Unknown]
  - Rash pruritic [Recovered/Resolved]
  - Pain [Not Recovered/Not Resolved]
  - Chest discomfort [Recovered/Resolved]
  - Musculoskeletal stiffness [Not Recovered/Not Resolved]

NARRATIVE: CASE EVENT DATE: 20170824
